FAERS Safety Report 13124473 (Version 3)
Quarter: 2017Q2

REPORT INFORMATION
  Report Type: Spontaneous
  Country: US (occurrence: US)
  Receive Date: 20170118
  Receipt Date: 20170420
  Transmission Date: 20170830
  Serious: No
  Sender: FDA-Public Use
  Company Number: US-PFIZER INC-2017016294

PATIENT
  Age: 49 Year
  Sex: Female

DRUGS (1)
  1. IBRANCE [Suspect]
     Active Substance: PALBOCICLIB
     Indication: BREAST CANCER
     Dosage: 75 MG, DAILY (FOR 21 DAYS ON 7 OFF)
     Route: 048

REACTIONS (4)
  - Somnolence [Unknown]
  - Poor quality sleep [Unknown]
  - Dizziness [Unknown]
  - Fatigue [Unknown]
